FAERS Safety Report 21877799 (Version 2)
Quarter: 2023Q1

REPORT INFORMATION
  Report Type: Report from Study
  Country: JP (occurrence: JP)
  Receive Date: 20230118
  Receipt Date: 20230127
  Transmission Date: 20230418
  Serious: Yes (Hospitalization)
  Sender: FDA-Public Use
  Company Number: JP-CHUGAI-2023000010

PATIENT
  Age: 77 Year
  Sex: Female
  Weight: 57.6 kg

DRUGS (9)
  1. ATEZOLIZUMAB [Suspect]
     Active Substance: ATEZOLIZUMAB
     Indication: Thymic carcinoma
     Dosage: 1200 MILLIGRAM, ONCE/3WEEKS
     Route: 042
     Dates: start: 20221227
  2. CARBOPLATIN [Concomitant]
     Active Substance: CARBOPLATIN
     Indication: Thymic carcinoma
     Dosage: 528 MILLIGRAM, ONCE/3WEEKS
     Route: 042
     Dates: start: 20221227
  3. PACLITAXEL [Concomitant]
     Active Substance: PACLITAXEL
     Indication: Thymic carcinoma
     Dosage: 312 MILLIGRAM, ONCE/3WEEKS
     Route: 042
     Dates: start: 20221227
  4. CALCIUM L-ASPARTATE [Concomitant]
     Indication: Prophylaxis
     Dosage: 600 MILLIGRAM, TID
     Route: 048
     Dates: start: 20221228
  5. ALFACALCIDOL [Concomitant]
     Active Substance: ALFACALCIDOL
     Indication: Prophylaxis
     Dosage: 1 MICROGRAM, QD
     Route: 048
     Dates: start: 20221228
  6. DIQUAFOSOL TETRASODIUM [Concomitant]
     Active Substance: DIQUAFOSOL TETRASODIUM
     Indication: Age-related macular degeneration
     Dosage: 2 GTT DROPS, PRN
     Route: 047
  7. DIQUAFOSOL TETRASODIUM [Concomitant]
     Active Substance: DIQUAFOSOL TETRASODIUM
     Dosage: 2 GTT DROPS, PRN
     Route: 047
     Dates: start: 20221228
  8. SODIUM PICOSULFATE [Concomitant]
     Active Substance: SODIUM PICOSULFATE
     Indication: Constipation
     Dosage: UNK, PRN
     Route: 048
     Dates: start: 20221228
  9. CARBOCYSTEINE [Concomitant]
     Active Substance: CARBOCYSTEINE
     Indication: Tracheitis
     Dosage: 500 MILLIGRAM, TID
     Route: 048
     Dates: start: 20221231

REACTIONS (2)
  - Hypoxia [Recovered/Resolved]
  - Febrile neutropenia [Recovered/Resolved]

NARRATIVE: CASE EVENT DATE: 20221231
